FAERS Safety Report 11647517 (Version 1)
Quarter: 2015Q4

REPORT INFORMATION
  Report Type: Spontaneous
  Country: US (occurrence: None)
  Receive Date: 20151020
  Receipt Date: 20151020
  Transmission Date: 20160304
  Serious: Yes (Hospitalization, Disabling)
  Sender: FDA-Public Use
  Company Number: None

PATIENT
  Age: 59 Year
  Sex: Male
  Weight: 77.11 kg

DRUGS (10)
  1. GABAPENTIN. [Concomitant]
     Active Substance: GABAPENTIN
  2. CHONDROITIN/GLUCOSAMINE [Concomitant]
     Active Substance: CHONDROITIN SULFATE (BOVINE)\GLUCOSAMINE SULFATE
  3. TRUVADA [Suspect]
     Active Substance: EMTRICITABINE\TENOFOVIR DISOPROXIL FUMARATE
     Indication: HIV INFECTION
     Route: 048
     Dates: start: 20050627, end: 20151019
  4. VITAMIN D [Suspect]
     Active Substance: CHOLECALCIFEROL
  5. FAMICYCLOVIR [Concomitant]
  6. CLOPIDOGREL [Concomitant]
     Active Substance: CLOPIDOGREL BISULFATE
  7. NEXIUM [Concomitant]
     Active Substance: ESOMEPRAZOLE MAGNESIUM
  8. ASA [Concomitant]
     Active Substance: ASPIRIN
  9. FORTEO [Concomitant]
     Active Substance: TERIPARATIDE
  10. LORATADINE. [Concomitant]
     Active Substance: LORATADINE

REACTIONS (9)
  - Ankle fracture [None]
  - Hip fracture [None]
  - Foot fracture [None]
  - Spondylolisthesis [None]
  - Osteopenia [None]
  - Clavicle fracture [None]
  - Spinal compression fracture [None]
  - Osteoporosis [None]
  - Rib fracture [None]

NARRATIVE: CASE EVENT DATE: 20150618
